FAERS Safety Report 7331246-0 (Version None)
Quarter: 2011Q1

REPORT INFORMATION
  Report Type: 
  Country: None (occurrence: None)
  Receive Date: 20110304
  Receipt Date: 20110225
  Transmission Date: 20110831
  Serious: Yes (Other)
  Sender: FDA-Public Use
  Company Number: US-PFIZER INC-2011041887

PATIENT
  Sex: Female

DRUGS (1)
  1. PRISTIQ [Suspect]
     Dosage: UNK

REACTIONS (4)
  - CROHN'S DISEASE [None]
  - DRUG WITHDRAWAL SYNDROME [None]
  - MEDICATION RESIDUE [None]
  - DRUG INEFFECTIVE [None]
